FAERS Safety Report 23821815 (Version 5)
Quarter: 2024Q3

REPORT INFORMATION
  Report Type: Spontaneous
  Country: US (occurrence: US)
  Receive Date: 20240506
  Receipt Date: 20240730
  Transmission Date: 20241017
  Serious: Yes (Other)
  Sender: GLAXOSMITHKLINE
  Company Number: US-GLAXOSMITHKLINE-US2024AMR055921

PATIENT
  Age: 82 Year
  Sex: Female

DRUGS (2)
  1. ZEJULA [Suspect]
     Active Substance: NIRAPARIB
     Indication: Ovarian cancer
     Dosage: 200 MG, QD
  2. ZEJULA [Suspect]
     Active Substance: NIRAPARIB
     Indication: Metastases to abdominal cavity
     Dosage: 100 MG, QD

REACTIONS (10)
  - Hypertensive crisis [Unknown]
  - Hypertension [Unknown]
  - Blood pressure increased [Unknown]
  - Dizziness [Unknown]
  - Fall [Unknown]
  - Myalgia [Unknown]
  - Pain [Unknown]
  - Dysphagia [Recovering/Resolving]
  - Vomiting [Recovering/Resolving]
  - Hiatus hernia [Unknown]

NARRATIVE: CASE EVENT DATE: 20240426
